FAERS Safety Report 21615168 (Version 3)
Quarter: 2023Q4

REPORT INFORMATION
  Report Type: Spontaneous
  Country: IT (occurrence: IT)
  Receive Date: 20221118
  Receipt Date: 20231117
  Transmission Date: 20240110
  Serious: Yes (Other)
  Sender: FDA-Public Use
  Company Number: IT-BRISTOL-MYERS SQUIBB COMPANY-2022-106776

PATIENT
  Age: 26 Day
  Sex: Male

DRUGS (3)
  1. AZACITIDINE [Suspect]
     Active Substance: AZACITIDINE
     Indication: Acute lymphocytic leukaemia
     Dosage: UNK
     Route: 065
  2. AZACITIDINE [Suspect]
     Active Substance: AZACITIDINE
     Dosage: 55 MG/SQ. METER FOR 7D EVERY 21 DAYS
     Route: 065
  3. AZACITIDINE [Suspect]
     Active Substance: AZACITIDINE
     Dosage: 55 MG/SQ. METER FOR 7 D EVERY 21 DAYS
     Route: 065

REACTIONS (5)
  - Gastrointestinal toxicity [Unknown]
  - Disease recurrence [Unknown]
  - Cytopenia [Unknown]
  - Intentional product use issue [Unknown]
  - Off label use [Unknown]
